FAERS Safety Report 19537294 (Version 1)
Quarter: 2021Q3

REPORT INFORMATION
  Report Type: Spontaneous
  Country: GB (occurrence: GB)
  Receive Date: 20210713
  Receipt Date: 20210713
  Transmission Date: 20211014
  Serious: Yes (Other)
  Sender: FDA-Public Use
  Company Number: GB-BAUSCH-BL-2021-023887

PATIENT
  Age: 85 Year
  Sex: Male

DRUGS (1)
  1. VIRGAN [Suspect]
     Active Substance: GANCICLOVIR
     Indication: PRODUCT USED FOR UNKNOWN INDICATION
     Dosage: FOR 4/5 WEEKS
     Route: 047

REACTIONS (5)
  - Corneal degeneration [Unknown]
  - Drug ineffective [Unknown]
  - Product prescribing issue [Unknown]
  - Visual impairment [Unknown]
  - Eye irritation [Unknown]
